FAERS Safety Report 8078809-5 (Version None)
Quarter: 2012Q1

REPORT INFORMATION
  Report Type: 
  Country: None (occurrence: None)
  Receive Date: 20120127
  Receipt Date: 20110111
  Transmission Date: 20120608
  Serious: No
  Sender: FDA-Public Use
  Company Number: US-ABBOTT-11P-163-0696499-00

PATIENT
  Age: 61 Year
  Sex: Male

DRUGS (8)
  1. PREVACID [Concomitant]
     Indication: GASTROOESOPHAGEAL REFLUX DISEASE
  2. HUMIRA [Suspect]
     Indication: COLITIS ULCERATIVE
  3. UNKNOWN MEDICATION [Concomitant]
     Indication: COLITIS
  4. HUMIRA [Suspect]
  5. GLUCOZIDE XL [Concomitant]
     Indication: DIABETES MELLITUS
  6. MINIPRESS [Concomitant]
     Indication: HYPERTENSION
  7. ALTACE [Concomitant]
     Indication: HYPERTENSION
     Dosage: DAILY
  8. FLOMAX [Concomitant]
     Indication: PROSTATIC DISORDER
     Dosage: DAILY

REACTIONS (2)
  - INJECTION SITE PAIN [None]
  - DRUG INEFFECTIVE [None]
